FAERS Safety Report 15243920 (Version 2)
Quarter: 2018Q4

REPORT INFORMATION
  Report Type: Spontaneous
  Country: US (occurrence: US)
  Receive Date: 20180806
  Receipt Date: 20181005
  Transmission Date: 20190204
  Serious: No
  Sender: FDA-Public Use
  Company Number: US-SA-2018SA211428

PATIENT
  Age: 63 Year
  Sex: Male

DRUGS (3)
  1. PRALUENT [Suspect]
     Active Substance: ALIROCUMAB
     Indication: TYPE V HYPERLIPIDAEMIA
     Dosage: 75 MG, QOW
     Route: 058
     Dates: start: 20180724
  2. REPATHA [Concomitant]
     Active Substance: EVOLOCUMAB
  3. ALIROCUMAB PREFILLED PEN [Suspect]
     Active Substance: ALIROCUMAB
     Indication: TYPE V HYPERLIPIDAEMIA
     Dosage: 75 MG, QOW
     Route: 058
     Dates: start: 20180724

REACTIONS (3)
  - Urticaria [Unknown]
  - Injection site pruritus [Recovering/Resolving]
  - Injection site bruising [Unknown]

NARRATIVE: CASE EVENT DATE: 20180725
